FAERS Safety Report 6828901-5 (Version None)
Quarter: 2010Q3

REPORT INFORMATION
  Report Type: 
  Country: None (occurrence: None)
  Receive Date: 20100709
  Receipt Date: 20070222
  Transmission Date: 20110219
  Serious: No
  Sender: FDA-Public Use
  Company Number: US-PFIZER INC-2007015333

PATIENT
  Sex: Male
  Weight: 109.77 kg

DRUGS (1)
  1. CHANTIX [Suspect]
     Indication: SMOKING CESSATION THERAPY
     Route: 048
     Dates: start: 20070101, end: 20070101

REACTIONS (5)
  - DECREASED APPETITE [None]
  - INSOMNIA [None]
  - PRURITUS [None]
  - RASH [None]
  - WEIGHT DECREASED [None]
